FAERS Safety Report 17515352 (Version 1)
Quarter: 2020Q1

REPORT INFORMATION
  Report Type: Spontaneous
  Country: DE (occurrence: DE)
  Receive Date: 20200309
  Receipt Date: 20200309
  Transmission Date: 20200409
  Serious: Yes (Other)
  Sender: FDA-Public Use
  Company Number: ALC2020DE002061

PATIENT

DRUGS (2)
  1. SIMBRINZA [Suspect]
     Active Substance: BRIMONIDINE TARTRATE\BRINZOLAMIDE
     Indication: PRODUCT USED FOR UNKNOWN INDICATION
     Dosage: MAY OR JUN
     Route: 047
     Dates: start: 2019
  2. SYSTANE HYDRATION PF PRESERVATIVE FREE [Suspect]
     Active Substance: POLYETHYLENE GLYCOL 400\PROPYLENE GLYCOL
     Indication: PRODUCT USED FOR UNKNOWN INDICATION
     Dosage: CA. CHRISTMAS TIME 2019T
     Route: 047
     Dates: start: 2019

REACTIONS (5)
  - Drug interaction [Recovering/Resolving]
  - Drug hypersensitivity [Recovering/Resolving]
  - Ocular hyperaemia [Recovering/Resolving]
  - Drug intolerance [Recovering/Resolving]
  - Eye infection [Recovering/Resolving]

NARRATIVE: CASE EVENT DATE: 201912
